FAERS Safety Report 23452852 (Version 1)
Quarter: 2024Q1

REPORT INFORMATION
  Report Type: Spontaneous
  Country: GB (occurrence: GB)
  Receive Date: 20240129
  Receipt Date: 20240129
  Transmission Date: 20240410
  Serious: Yes (Death, Hospitalization, Other)
  Sender: FDA-Public Use
  Company Number: GB-002147023-NVSC2020GB360442

PATIENT
  Age: 71 Year
  Sex: Female
  Weight: 54 kg

DRUGS (88)
  1. AMLODIPINE [Suspect]
     Active Substance: AMLODIPINE BESYLATE
     Dosage: 1 MG, QD
     Route: 065
  2. AMLODIPINE [Suspect]
     Active Substance: AMLODIPINE BESYLATE
     Dosage: UNK , QD
     Route: 065
  3. AMLODIPINE [Suspect]
     Active Substance: AMLODIPINE BESYLATE
     Indication: Hypertension
     Dosage: UNK UNK, QD
     Route: 065
  4. AMLODIPINE [Suspect]
     Active Substance: AMLODIPINE BESYLATE
     Dosage: UNK
     Route: 065
  5. AMLODIPINE [Suspect]
     Active Substance: AMLODIPINE BESYLATE
     Dosage: UNK
     Route: 065
  6. AMOXICILLIN [Suspect]
     Active Substance: AMOXICILLIN
     Indication: Product used for unknown indication
     Dosage: UNK, QW
     Route: 065
     Dates: start: 20200810, end: 20200816
  7. AMOXICILLIN [Suspect]
     Active Substance: AMOXICILLIN
     Dosage: UNK UNK, QD
     Route: 065
  8. ATEZOLIZUMAB [Suspect]
     Active Substance: ATEZOLIZUMAB
     Indication: Small cell lung cancer extensive stage
     Dosage: 1200 MG, Q3W (MOST RECENT DOSE OF ATEZOLIZUMAB PRIOR TO ADVERSE EVENT (NAUSEA) ONSET ON 19/AUG/2020)
     Route: 041
     Dates: start: 20200729
  9. ATEZOLIZUMAB [Suspect]
     Active Substance: ATEZOLIZUMAB
     Indication: Transitional cell carcinoma
     Dosage: 1200 MG, TIW
     Route: 041
     Dates: start: 20200819
  10. ATEZOLIZUMAB [Suspect]
     Active Substance: ATEZOLIZUMAB
     Indication: Small cell lung cancer
     Dosage: UNK
     Route: 065
  11. ATEZOLIZUMAB [Suspect]
     Active Substance: ATEZOLIZUMAB
     Dosage: UNK
     Route: 065
  12. CARBOPLATIN [Suspect]
     Active Substance: CARBOPLATIN
     Indication: Small cell lung cancer extensive stage
     Dosage: 450 MG, QD (450 MILLIGRAM)
     Route: 065
     Dates: start: 20200729
  13. CARBOPLATIN [Suspect]
     Active Substance: CARBOPLATIN
     Indication: Non-small cell lung cancer
  14. CIPROFLOXACIN [Suspect]
     Active Substance: CIPROFLOXACIN
     Dosage: 2 DOSAGE FORM, QD
     Route: 065
     Dates: start: 20200827
  15. CIPROFLOXACIN [Suspect]
     Active Substance: CIPROFLOXACIN
     Dosage: UNK
     Route: 065
  16. CIPROFLOXACIN [Suspect]
     Active Substance: CIPROFLOXACIN
     Indication: Prophylaxis
     Dosage: UNK (0.5 DAY)
     Route: 065
     Dates: start: 20200827
  17. CLOPIDOGREL [Suspect]
     Active Substance: CLOPIDOGREL BISULFATE
     Indication: Hypertension
     Dosage: 1 DOSAGE FORM, QD
     Route: 065
  18. CLOPIDOGREL [Suspect]
     Active Substance: CLOPIDOGREL BISULFATE
     Dosage: 1 DOSAGE FORM, QD
     Route: 065
  19. CLOPIDOGREL [Suspect]
     Active Substance: CLOPIDOGREL BISULFATE
     Dosage: 1 DOSAGE FORM, QD
     Route: 065
  20. CLOPIDOGREL BISULFATE [Suspect]
     Active Substance: CLOPIDOGREL BISULFATE
     Indication: Hypertension
     Dosage: UNK
     Route: 065
  21. CYCLIZINE [Suspect]
     Active Substance: CYCLIZINE
     Indication: Neutropenic sepsis
     Dosage: 4 MG, QD
     Route: 065
  22. CYCLIZINE [Suspect]
     Active Substance: CYCLIZINE
     Indication: Vomiting
     Dosage: UNK, QID (0.25 DAY)
     Route: 065
  23. CYCLIZINE [Suspect]
     Active Substance: CYCLIZINE
     Dosage: 1.3 DAY
     Route: 065
  24. CYCLIZINE [Suspect]
     Active Substance: CYCLIZINE
     Dosage: 1.3 DAY
     Route: 065
  25. CYCLIZINE [Suspect]
     Active Substance: CYCLIZINE
     Dosage: 1.3 DAY
     Route: 065
  26. CYCLIZINE [Suspect]
     Active Substance: CYCLIZINE
     Dosage: UNK
     Route: 065
  27. DEXAMETHASONE [Suspect]
     Active Substance: DEXAMETHASONE
     Indication: Dysphagia
     Dosage: UNK, QD
     Route: 065
     Dates: start: 20200826
  28. DEXAMETHASONE [Suspect]
     Active Substance: DEXAMETHASONE
     Dosage: UNK, Q12H
     Route: 065
  29. DEXAMETHASONE [Suspect]
     Active Substance: DEXAMETHASONE
     Dosage: UNK, Q12H
     Route: 065
  30. DEXAMETHASONE [Suspect]
     Active Substance: DEXAMETHASONE
     Dosage: UNK, Q12H
     Route: 065
  31. DEXAMETHASONE [Suspect]
     Active Substance: DEXAMETHASONE
     Indication: Prophylaxis
     Dosage: 0.5 DAY
     Route: 065
  32. DEXAMETHASONE [Suspect]
     Active Substance: DEXAMETHASONE
     Dosage: 0.5 DAY
     Route: 065
  33. DEXAMETHASONE [Suspect]
     Active Substance: DEXAMETHASONE
     Dosage: 0.5 DAY
     Route: 065
  34. DEXAMETHASONE [Suspect]
     Active Substance: DEXAMETHASONE
     Dosage: UNK
     Route: 065
  35. BENZYDAMINE [Suspect]
     Active Substance: BENZYDAMINE
     Indication: Prophylaxis
     Dosage: UNK
     Route: 065
     Dates: start: 20200819
  36. ETOPOSIDE [Suspect]
     Active Substance: ETOPOSIDE
     Indication: Small cell lung cancer extensive stage
     Dosage: 148 MG
     Route: 042
     Dates: start: 20200729
  37. ETOPOSIDE [Suspect]
     Active Substance: ETOPOSIDE
     Indication: Non-small cell lung cancer
     Dosage: 600 MG, QD (600 MILLIGRAM)
     Route: 048
     Dates: start: 20200730
  38. FORMOTEROL [Suspect]
     Active Substance: FORMOTEROL
     Indication: Hypertension
     Dosage: 0.5 MG, 0.5 DAY
     Route: 065
     Dates: start: 20200301
  39. FORMOTEROL [Suspect]
     Active Substance: FORMOTEROL
     Dosage: 1 MG, BID
     Route: 065
     Dates: start: 20200301
  40. FLUCONAZOLE [Suspect]
     Active Substance: FLUCONAZOLE
     Indication: Candida infection
     Dosage: UNK, QD
     Route: 065
  41. FLUCONAZOLE [Suspect]
     Active Substance: FLUCONAZOLE
     Dosage: UNK, QD
     Route: 065
  42. FLUCONAZOLE [Suspect]
     Active Substance: FLUCONAZOLE
     Dosage: UNK
     Route: 065
  43. FLUCONAZOLE [Suspect]
     Active Substance: FLUCONAZOLE
     Dosage: UNK
     Route: 065
  44. LACTULOSE [Suspect]
     Active Substance: LACTULOSE
     Dosage: UNK, QD
     Route: 065
  45. LACTULOSE [Suspect]
     Active Substance: LACTULOSE
     Dosage: UNK, QD (0.5 DAY)
     Route: 065
  46. LACTULOSE [Suspect]
     Active Substance: LACTULOSE
     Dosage: UNK, Q12H
     Route: 065
  47. LACTULOSE [Suspect]
     Active Substance: LACTULOSE
     Dosage: UNK, Q12H
     Route: 065
  48. LACTULOSE [Suspect]
     Active Substance: LACTULOSE
     Indication: Prophylaxis
     Dosage: UNK, BID (0.5 DAY)
     Route: 065
  49. LACTULOSE [Suspect]
     Active Substance: LACTULOSE
     Dosage: UNK
     Route: 065
  50. LACTULOSE [Suspect]
     Active Substance: LACTULOSE
     Dosage: UNK
     Route: 065
  51. LANSOPRAZOLE [Suspect]
     Active Substance: LANSOPRAZOLE
     Indication: Prophylaxis
     Dosage: 1 MG, QD
     Route: 065
     Dates: start: 20170101
  52. LINEZOLID [Suspect]
     Active Substance: LINEZOLID
     Indication: Neutropenic sepsis
     Dosage: UNK
     Route: 065
     Dates: start: 20200830
  53. MORPHINE SULFATE [Suspect]
     Active Substance: MORPHINE SULFATE
     Indication: Prophylaxis
     Dosage: UNK
     Route: 065
     Dates: start: 20200727
  54. MORPHINE SULFATE [Suspect]
     Active Substance: MORPHINE SULFATE
     Dosage: UNK
     Route: 065
     Dates: start: 20200825
  55. MORPHINE SULFATE [Suspect]
     Active Substance: MORPHINE SULFATE
     Indication: Pain
     Dosage: UNK (0.5 A DAY)
     Route: 065
     Dates: start: 20200731
  56. MORPHINE SULFATE [Suspect]
     Active Substance: MORPHINE SULFATE
     Indication: Pain
     Dosage: 1 MG, QD
     Route: 065
     Dates: start: 20200727
  57. MORPHINE SULFATE [Suspect]
     Active Substance: MORPHINE SULFATE
     Dosage: UNK UNK, QD
     Route: 065
     Dates: start: 20200731
  58. MORPHINE SULFATE [Suspect]
     Active Substance: MORPHINE SULFATE
     Dosage: UNK UNK, QD
     Route: 065
     Dates: start: 20200825
  59. ALBUTEROL [Suspect]
     Active Substance: ALBUTEROL
     Indication: Prophylaxis
     Dosage: UNK
     Route: 065
  60. ALBUTEROL [Suspect]
     Active Substance: ALBUTEROL
     Dosage: UNK
     Route: 065
  61. ALBUTEROL [Suspect]
     Active Substance: ALBUTEROL
     Dosage: UNK
     Route: 065
  62. ACETAMINOPHEN\CODEINE PHOSPHATE [Suspect]
     Active Substance: ACETAMINOPHEN\CODEINE PHOSPHATE
     Dosage: 0.5 MG, QD
     Route: 065
  63. ACETAMINOPHEN\CODEINE PHOSPHATE [Suspect]
     Active Substance: ACETAMINOPHEN\CODEINE PHOSPHATE
     Dosage: UNK, QD
     Route: 065
  64. ACETAMINOPHEN\CODEINE PHOSPHATE [Suspect]
     Active Substance: ACETAMINOPHEN\CODEINE PHOSPHATE
     Dosage: 0.5 DAY
     Route: 065
  65. ACETAMINOPHEN\CODEINE PHOSPHATE [Suspect]
     Active Substance: ACETAMINOPHEN\CODEINE PHOSPHATE
     Dosage: 0.5 DAY
     Route: 065
  66. ACETAMINOPHEN\CODEINE PHOSPHATE [Suspect]
     Active Substance: ACETAMINOPHEN\CODEINE PHOSPHATE
     Dosage: 0.5 DAY
     Route: 065
  67. ACETAMINOPHEN\CODEINE PHOSPHATE [Suspect]
     Active Substance: ACETAMINOPHEN\CODEINE PHOSPHATE
     Indication: Pain
     Dosage: UNK UNK, QD
     Route: 065
  68. SPIRIVA [Suspect]
     Active Substance: TIOTROPIUM BROMIDE MONOHYDRATE
     Dosage: 1 DOSAGE FORM, QD
     Route: 065
  69. SPIRIVA [Suspect]
     Active Substance: TIOTROPIUM BROMIDE MONOHYDRATE
     Dosage: UNK, QD
     Route: 065
  70. SPIRIVA [Suspect]
     Active Substance: TIOTROPIUM BROMIDE MONOHYDRATE
     Indication: Chronic obstructive pulmonary disease
     Dosage: UNK
     Route: 065
  71. TIOTROPIUM [Suspect]
     Active Substance: TIOTROPIUM
     Indication: Chronic obstructive pulmonary disease
     Dosage: UNK, QD
     Route: 065
  72. TIOTROPIUM [Suspect]
     Active Substance: TIOTROPIUM
     Dosage: UNK, QD
     Route: 065
  73. TIOTROPIUM [Suspect]
     Active Substance: TIOTROPIUM
     Dosage: UNK
     Route: 065
  74. VENLAFAXINE [Suspect]
     Active Substance: VENLAFAXINE HYDROCHLORIDE
     Dosage: UNK UNK, QD
     Route: 065
  75. VENLAFAXINE [Suspect]
     Active Substance: VENLAFAXINE HYDROCHLORIDE
     Dosage: UNK
     Route: 065
  76. VENLAFAXINE [Suspect]
     Active Substance: VENLAFAXINE HYDROCHLORIDE
     Indication: Depression
     Dosage: UNK (0.5 DAY)
     Route: 065
     Dates: start: 20200820
  77. VORICONAZOLE [Suspect]
     Active Substance: VORICONAZOLE
     Indication: Neutropenic sepsis
     Dosage: 1 DOSAGE FORM, QD
     Route: 065
     Dates: start: 20200830
  78. ZOLMITRIPTAN [Suspect]
     Active Substance: ZOLMITRIPTAN
     Indication: Pain
     Dosage: UNK UNK, QD
     Route: 065
  79. ZOPICLONE [Suspect]
     Active Substance: ZOPICLONE
     Indication: Prophylaxis
     Dosage: 1 MG, QD
     Route: 065
     Dates: start: 20200731
  80. MAGNESIUM [Concomitant]
     Active Substance: MAGNESIUM
     Indication: Product used for unknown indication
     Dosage: UNK
     Route: 065
     Dates: start: 20200819, end: 20200819
  81. ONDANSETRON [Concomitant]
     Active Substance: ONDANSETRON
     Indication: Product used for unknown indication
     Dosage: 8 MG
     Route: 065
     Dates: start: 20200729, end: 20200729
  82. PHOSPHORIC ACID [Concomitant]
     Active Substance: PHOSPHORIC ACID
     Indication: Product used for unknown indication
     Dosage: UNK UNK, QID
     Route: 065
     Dates: start: 20200825, end: 20200825
  83. PHOSPHORIC ACID [Concomitant]
     Active Substance: PHOSPHORIC ACID
     Dosage: UNK
     Route: 065
  84. POTASSIUM CHLORIDE [Concomitant]
     Active Substance: POTASSIUM CHLORIDE
     Indication: Prophylaxis
     Dosage: UNK UNK, QD (0.5)
     Route: 065
     Dates: start: 20200819
  85. POTASSIUM CHLORIDE [Concomitant]
     Active Substance: POTASSIUM CHLORIDE
     Dosage: UNK UNK, BID
     Route: 065
     Dates: start: 20200819
  86. POTASSIUM CHLORIDE [Concomitant]
     Active Substance: POTASSIUM CHLORIDE
     Dosage: UNK
     Route: 065
     Dates: start: 20200828
  87. POTASSIUM BICARBONATE\POTASSIUM CHLORIDE [Concomitant]
     Active Substance: POTASSIUM BICARBONATE\POTASSIUM CHLORIDE
     Indication: Prophylaxis
     Dosage: (0.5 DAY)
     Route: 065
     Dates: start: 20200819
  88. POTASSIUM BICARBONATE\POTASSIUM CHLORIDE [Concomitant]
     Active Substance: POTASSIUM BICARBONATE\POTASSIUM CHLORIDE
     Dosage: UNK
     Route: 065
     Dates: start: 20200828, end: 20200901

REACTIONS (28)
  - Death [Fatal]
  - Balance disorder [Fatal]
  - Hypomagnesaemia [Fatal]
  - Product use in unapproved indication [Fatal]
  - Asthenia [Unknown]
  - Gait disturbance [Unknown]
  - Nausea [Recovered/Resolved]
  - Headache [Not Recovered/Not Resolved]
  - Hypokalaemia [Recovered/Resolved]
  - Hypomagnesaemia [Recovered/Resolved]
  - Vomiting [Not Recovered/Not Resolved]
  - Productive cough [Not Recovered/Not Resolved]
  - Mucosal inflammation [Not Recovered/Not Resolved]
  - Constipation [Not Recovered/Not Resolved]
  - Diarrhoea [Recovered/Resolved]
  - Nervous system disorder [Not Recovered/Not Resolved]
  - Anaemia [Recovered/Resolved]
  - Mouth ulceration [Recovered/Resolved]
  - Dysphagia [Not Recovered/Not Resolved]
  - Neutropenic sepsis [Not Recovered/Not Resolved]
  - Anaemia [Unknown]
  - Decreased appetite [Recovered/Resolved]
  - Neutrophil count decreased [Recovered/Resolved]
  - Dehydration [Not Recovered/Not Resolved]
  - Dyspnoea [Not Recovered/Not Resolved]
  - Skin candida [Not Recovered/Not Resolved]
  - Candida infection [Not Recovered/Not Resolved]
  - Depression [Not Recovered/Not Resolved]

NARRATIVE: CASE EVENT DATE: 20200730
